FAERS Safety Report 9035620 (Version 1)
Quarter: 2013Q1

REPORT INFORMATION
  Report Type: Report from Study
  Country: US (occurrence: US)
  Receive Date: 20130129
  Receipt Date: 20130129
  Transmission Date: 20140127
  Serious: No
  Sender: FDA-Public Use
  Company Number: US-ABBOTT-12P-163-0912552-00

PATIENT
  Age: 61 None
  Sex: Male

DRUGS (5)
  1. HUMIRA 40 MG/0.8 ML PEN [Suspect]
     Indication: CROHN^S DISEASE
     Dates: start: 200708, end: 2010
  2. HUMIRA 40 MG/0.8 ML PEN [Suspect]
     Dates: start: 2010
  3. VERAPAMIL [Concomitant]
     Indication: HYPERTENSION
  4. LISINOPRIL [Concomitant]
     Indication: HYPERTENSION
  5. CLONIDINE [Concomitant]
     Indication: HYPERTENSION

REACTIONS (2)
  - Drug effect increased [Recovered/Resolved]
  - Inappropriate schedule of drug administration [Unknown]
